FAERS Safety Report 9741398 (Version 1)
Quarter: 2013Q4

REPORT INFORMATION
  Report Type: Report from Study
  Country: NL (occurrence: NL)
  Receive Date: 20131209
  Receipt Date: 20131209
  Transmission Date: 20140711
  Serious: Yes (Death)
  Sender: FDA-Public Use
  Company Number: NL-ABBVIE-13P-114-1177403-00

PATIENT
  Age: 65 Year
  Sex: Male

DRUGS (3)
  1. LUCRIN DEPOT (LEUPRORELINE) [Suspect]
     Indication: PROSTATE CANCER
     Route: 058
     Dates: start: 20130618, end: 20131209
  2. ATORVASTATINE [Concomitant]
     Indication: PRODUCT USED FOR UNKNOWN INDICATION
     Dates: start: 20130102
  3. PICOPREP [Concomitant]
     Indication: PRODUCT USED FOR UNKNOWN INDICATION
     Dosage: 16, 1 G SACH PDR V D
     Dates: start: 20131205

REACTIONS (1)
  - Death [Fatal]
